FAERS Safety Report 6147038-4 (Version None)
Quarter: 2009Q2

REPORT INFORMATION
  Report Type: 
  Country: None (occurrence: None)
  Receive Date: 20090403
  Receipt Date: 20090401
  Transmission Date: 20091009
  Serious: Yes (Death, Life-Threatening, Hospitalization)
  Sender: FDA-Public Use
  Company Number: 2006-04-0657

PATIENT
  Age: 61 Year
  Sex: Female
  Weight: 50 kg

DRUGS (7)
  1. PEG-INTRON [Suspect]
     Indication: HEPATITIS C
     Dosage: 80 MCG;QW;SC
     Route: 058
     Dates: start: 20060313, end: 20060327
  2. REBETOL [Suspect]
     Indication: HEPATITIS C
     Dosage: 600 MG;QD;PO
     Route: 048
     Dates: start: 20060313, end: 20060401
  3. PEGASYS [Suspect]
     Indication: HEPATITIS C
  4. LANDEL [Concomitant]
  5. BLOPRESS [Concomitant]
  6. THYRADIN S [Concomitant]
  7. JUZENTAIHOTO [Concomitant]

REACTIONS (9)
  - ARRHYTHMIA [None]
  - DISSEMINATED INTRAVASCULAR COAGULATION [None]
  - MULTI-ORGAN FAILURE [None]
  - PLATELET COUNT DECREASED [None]
  - PNEUMOCOCCAL INFECTION [None]
  - PNEUMOCOCCAL SEPSIS [None]
  - RESPIRATORY ARREST [None]
  - VENTRICULAR FIBRILLATION [None]
  - WHITE BLOOD CELL COUNT DECREASED [None]
